FAERS Safety Report 22124426 (Version 1)
Quarter: 2023Q1

REPORT INFORMATION
  Report Type: Report from Study
  Country: US (occurrence: US)
  Receive Date: 20230322
  Receipt Date: 20230322
  Transmission Date: 20230418
  Serious: Yes (Other)
  Sender: FDA-Public Use
  Company Number: US-UCBSA-2023014398

PATIENT
  Age: 66 Year
  Sex: Female

DRUGS (1)
  1. CERTOLIZUMAB PEGOL [Suspect]
     Active Substance: CERTOLIZUMAB PEGOL
     Indication: Rheumatoid arthritis
     Dosage: 400 MILLIGRAM, EV 4 WEEKS
     Dates: start: 202203

REACTIONS (3)
  - Rheumatoid arthritis [Not Recovered/Not Resolved]
  - Ear infection [Not Recovered/Not Resolved]
  - Tympanic membrane perforation [Not Recovered/Not Resolved]

NARRATIVE: CASE EVENT DATE: 20220301
